FAERS Safety Report 5176759-5 (Version None)
Quarter: 2006Q4

REPORT INFORMATION
  Report Type: 
  Country: None (occurrence: None)
  Receive Date: 20061212
  Receipt Date: 20061212
  Transmission Date: 20070319
  Serious: Yes (Hospitalization)
  Sender: FDA-Public Use
  Company Number: None

PATIENT
  Age: 81 Year
  Sex: Female

DRUGS (3)
  1. PREDNISONE 10MG [Suspect]
     Indication: AUTOIMMUNE HEPATITIS
     Dosage: 10MG DAILY PO
     Route: 048
  2. IMURAN [Suspect]
     Indication: AUTOIMMUNE HEPATITIS
     Dosage: 50MG DAILY PO
     Route: 048
  3. HYDROCHLOROTHIAZIDE [Concomitant]

REACTIONS (2)
  - PANCREATITIS [None]
  - PSEUDOCYST [None]
